APPROVED DRUG PRODUCT: PYRIDOSTIGMINE BROMIDE
Active Ingredient: PYRIDOSTIGMINE BROMIDE
Strength: 30MG
Dosage Form/Route: TABLET;ORAL
Application: A040512 | Product #002
Applicant: ANI PHARMACEUTICALS INC
Approved: Jul 20, 2005 | RLD: No | RS: No | Type: DISCN